FAERS Safety Report 16654533 (Version 1)
Quarter: 2019Q3

REPORT INFORMATION
  Report Type: Spontaneous
  Country: US (occurrence: US)
  Receive Date: 20190801
  Receipt Date: 20190801
  Transmission Date: 20191004
  Serious: No
  Sender: FDA-Public Use
  Company Number: US-009507513-1907USA002113

PATIENT
  Sex: Male

DRUGS (1)
  1. ASMANEX HFA [Suspect]
     Active Substance: MOMETASONE FUROATE
     Dosage: FOUR PUFFS, TWICE DAILY
     Route: 055

REACTIONS (3)
  - Overdose [Unknown]
  - Psychomotor hyperactivity [Unknown]
  - Hypersensitivity [Unknown]
